FAERS Safety Report 5485214-4 (Version None)
Quarter: 2007Q4

REPORT INFORMATION
  Report Type: 
  Country: None (occurrence: None)
  Receive Date: 20071015
  Receipt Date: 20071004
  Transmission Date: 20080405
  Serious: Yes (Hospitalization)
  Sender: FDA-Public Use
  Company Number: HQWYE834427AUG07

PATIENT
  Sex: Female
  Weight: 58.4 kg

DRUGS (7)
  1. TEMSIROLIMUS [Suspect]
     Indication: RENAL CELL CARCINOMA STAGE UNSPECIFIED
     Route: 042
     Dates: start: 20070806, end: 20070903
  2. VALSARTAN [Concomitant]
     Indication: HYPERTENSION
  3. SENNOSIDE A+B [Concomitant]
     Indication: CONSTIPATION
  4. ETIZOLAM [Concomitant]
     Indication: INSOMNIA
  5. MAGNESIUM OXIDE [Concomitant]
     Indication: CONSTIPATION
  6. WARFARIN POTASSIUM [Concomitant]
     Indication: VENOUS THROMBOSIS
  7. LOXOPROFEN SODIUM [Concomitant]
     Indication: PAIN

REACTIONS (2)
  - ATELECTASIS [None]
  - PLEURAL EFFUSION [None]
